FAERS Safety Report 6706592-1 (Version None)
Quarter: 2010Q2

REPORT INFORMATION
  Report Type: 
  Country: None (occurrence: None)
  Receive Date: 20100503
  Receipt Date: 20100422
  Transmission Date: 20101027
  Serious: Yes (Hospitalization)
  Sender: FDA-Public Use
  Company Number: DE-ROCHE-698893

PATIENT
  Sex: Female
  Weight: 90 kg

DRUGS (6)
  1. CAPECITABINE [Suspect]
     Indication: BREAST CANCER
     Dosage: ON DAYS 1-14; LAST DOSE PRIOR TO SAE: 22 APR 2010
     Route: 048
     Dates: start: 20100324
  2. BEVACIZUMAB [Suspect]
     Indication: BREAST CANCER
     Dosage: ON DAY 1; LAST DOSE PRIOR TO SAE: 16 APR 2010
     Route: 042
     Dates: start: 20100324
  3. VINORELBINE [Suspect]
     Indication: BREAST CANCER
     Dosage: ON DAY 1 AND 8; LAST DOSE PRIOR TO SAE: 16 APRIL 2010
     Route: 042
     Dates: start: 20100324
  4. TILIDIN [Concomitant]
     Dates: start: 20100301
  5. METAMIZOL [Concomitant]
     Dates: start: 20100301
  6. PANTOZOL [Concomitant]
     Dates: start: 20100301

REACTIONS (1)
  - OSTEOLYSIS [None]
